FAERS Safety Report 24445772 (Version 1)
Quarter: 2024Q4

REPORT INFORMATION
  Report Type: Spontaneous
  Country: US (occurrence: US)
  Receive Date: 20241016
  Receipt Date: 20241016
  Transmission Date: 20250115
  Serious: No
  Sender: SANDOZ
  Company Number: US-002147023-NVSC2023US249864

PATIENT
  Sex: Female

DRUGS (2)
  1. COMBIPATCH [Suspect]
     Active Substance: ESTRADIOL\NORETHINDRONE ACETATE
     Indication: Vulvovaginal pruritus
     Dosage: UNK, 0.05/0.14 MG, (CHANGES HER PATCHES ON SUNDAYS)
     Route: 062
     Dates: start: 2023
  2. COMBIPATCH [Suspect]
     Active Substance: ESTRADIOL\NORETHINDRONE ACETATE
     Indication: Hot flush
     Dosage: UNK ,0.05/0.14 MG, (CHANGES HER PATCHES ON SUNDAYS)
     Route: 062
     Dates: start: 202308

REACTIONS (4)
  - Intermenstrual bleeding [Not Recovered/Not Resolved]
  - Menstrual disorder [Unknown]
  - Application site irritation [Not Recovered/Not Resolved]
  - Application site pruritus [Not Recovered/Not Resolved]

NARRATIVE: CASE EVENT DATE: 20230901
